FAERS Safety Report 9548516 (Version 1)
Quarter: 2013Q2

REPORT INFORMATION
  Report Type: Spontaneous
  Country: US (occurrence: None)
  Receive Date: 20130627
  Receipt Date: 20130627
  Transmission Date: 20140414
  Serious: No
  Sender: FDA-Public Use
  Company Number: 1000043293

PATIENT
  Age: 83 Year
  Sex: Female

DRUGS (4)
  1. LINZESS (LINACLOTIDE) (145 MICROGRAM, CAPSULES) [Suspect]
     Indication: CONSTIPATION
     Route: 048
     Dates: start: 20130207
  2. LOSARTAN (LOSARTAN) (LOSARTAN) [Concomitant]
  3. METOPOLROL (METOPROLOL) (METOPROLOL) [Concomitant]
  4. COUMADIN (WARFARIN) (WARFARIN) [Concomitant]

REACTIONS (2)
  - Drug ineffective [None]
  - Blood pressure increased [None]
